FAERS Safety Report 10266347 (Version 1)
Quarter: 2014Q2

REPORT INFORMATION
  Report Type: Spontaneous
  Country: US (occurrence: US)
  Receive Date: 20140627
  Receipt Date: 20140627
  Transmission Date: 20141212
  Serious: Yes (Other)
  Sender: FDA-Public Use
  Company Number: US-US-EMD SERONO, INC.-7301699

PATIENT
  Sex: Female

DRUGS (1)
  1. GONAL-F [Suspect]
     Indication: PRODUCT USED FOR UNKNOWN INDICATION
     Dosage: 75 INTERNATIONAL UNITS FOR FOUR DAYS.

REACTIONS (1)
  - Abortion spontaneous [Unknown]
